FAERS Safety Report 6007721-8 (Version None)
Quarter: 2008Q4

REPORT INFORMATION
  Report Type: 
  Country: None (occurrence: None)
  Receive Date: 20081217
  Receipt Date: 20080520
  Transmission Date: 20090506
  Serious: No
  Sender: FDA-Public Use
  Company Number: US-ASTRAZENECA-2008UW10393

PATIENT
  Age: 63 Year
  Sex: Female
  Weight: 53.5 kg

DRUGS (3)
  1. CRESTOR [Suspect]
     Indication: BLOOD CHOLESTEROL
     Route: 048
     Dates: start: 20070301
  2. ATENOLOL [Concomitant]
  3. ACETYLSALICYLIC ACID [Concomitant]

REACTIONS (5)
  - BLISTER [None]
  - COLD SWEAT [None]
  - PAIN IN EXTREMITY [None]
  - PRURITUS [None]
  - THROAT TIGHTNESS [None]
